FAERS Safety Report 4573058-7 (Version None)
Quarter: 2005Q1

REPORT INFORMATION
  Report Type: 
  Country: None (occurrence: None)
  Receive Date: 20050204
  Receipt Date: 20050124
  Transmission Date: 20050727
  Serious: Yes (Hospitalization)
  Sender: FDA-Public Use
  Company Number: OMPQ-NO-0412S-1461

PATIENT
  Age: 78 Year
  Sex: Male

DRUGS (1)
  1. OMNIPAQUE 140 [Suspect]
     Indication: ANGINA PECTORIS
     Dosage: 100 ML, SINGLE DOSE, I.A.
     Dates: start: 20041217, end: 20041217

REACTIONS (5)
  - ANAPHYLACTOID REACTION [None]
  - CHEST DISCOMFORT [None]
  - FLUSHING [None]
  - PLEURAL EFFUSION [None]
  - RESPIRATORY DISTRESS [None]
